FAERS Safety Report 5260866-2 (Version None)
Quarter: 2007Q1

REPORT INFORMATION
  Report Type: 
  Country: None (occurrence: None)
  Receive Date: 20070309
  Receipt Date: 20070226
  Transmission Date: 20070707
  Serious: Yes (Other)
  Sender: FDA-Public Use
  Company Number: BE-ROCHE-481227

PATIENT
  Age: 30 Year
  Sex: Female

DRUGS (1)
  1. ROACCUTANE [Suspect]
     Indication: ACNE
     Dosage: DOSAGE REGIMEN REPORTED AS DAILY.
     Route: 048
     Dates: start: 20061215, end: 20070115

REACTIONS (1)
  - ABORTION INDUCED [None]
